FAERS Safety Report 6431634-0 (Version None)
Quarter: 2009Q4

REPORT INFORMATION
  Report Type: 
  Country: None (occurrence: None)
  Receive Date: 20091103
  Receipt Date: 20091019
  Transmission Date: 20100525
  Serious: Yes (Hospitalization)
  Sender: FDA-Public Use
  Company Number: 002739

PATIENT
  Age: 72 Year
  Sex: Male
  Weight: 52 kg

DRUGS (2)
  1. ASPIRIN [Suspect]
     Indication: CEREBRAL INFARCTION
     Dosage: 81 MG, QD, ORAL
     Route: 048
     Dates: start: 20050512, end: 20080720
  2. PLETAL [Suspect]

REACTIONS (3)
  - BLADDER TRANSITIONAL CELL CARCINOMA [None]
  - BLOOD UREA INCREASED [None]
  - URINARY RETENTION [None]
